FAERS Safety Report 11142362 (Version 3)
Quarter: 2015Q2

REPORT INFORMATION
  Report Type: Spontaneous
  Country: US (occurrence: US)
  Receive Date: 20150527
  Receipt Date: 20150609
  Transmission Date: 20150821
  Serious: Yes (Death, Other)
  Sender: FDA-Public Use
  Company Number: US-INCYTE CORPORATION-2015IN002259

PATIENT
  Age: 65 Year
  Sex: Male
  Weight: 102.4 kg

DRUGS (12)
  1. DEXEDRINE [Concomitant]
     Active Substance: DEXTROAMPHETAMINE SULFATE
  2. TRAZODONE [Concomitant]
     Active Substance: TRAZODONE HYDROCHLORIDE
     Dosage: UNK, PRN
  3. VORICONAZOLE. [Concomitant]
     Active Substance: VORICONAZOLE
  4. BETHANECHOL [Concomitant]
     Active Substance: BETHANECHOL
  5. JAKAFI [Suspect]
     Active Substance: RUXOLITINIB
     Indication: MYELOFIBROSIS
     Dosage: 15 MG, BID
     Route: 048
     Dates: start: 2015, end: 2015
  6. JAKAFI [Suspect]
     Active Substance: RUXOLITINIB
     Dosage: 7.5 MG, QOD
     Route: 048
     Dates: start: 2015, end: 20150531
  7. SERTRALINE [Concomitant]
     Active Substance: SERTRALINE HYDROCHLORIDE
  8. GABAPENTIN. [Concomitant]
     Active Substance: GABAPENTIN
  9. METHADONE [Concomitant]
     Active Substance: METHADONE HYDROCHLORIDE
  10. LASIX [Concomitant]
     Active Substance: FUROSEMIDE
  11. LAMICTAL [Concomitant]
     Active Substance: LAMOTRIGINE
  12. DILAUDID [Concomitant]
     Active Substance: HYDROMORPHONE HYDROCHLORIDE

REACTIONS (8)
  - Staphylococcal infection [Unknown]
  - Platelet count decreased [Unknown]
  - Death [Fatal]
  - Wrong technique in drug usage process [Unknown]
  - Metastasis [Unknown]
  - Spinal fracture [Unknown]
  - Malaise [Unknown]
  - Drug level increased [Unknown]

NARRATIVE: CASE EVENT DATE: 2015
